FAERS Safety Report 6827031-6 (Version None)
Quarter: 2010Q3

REPORT INFORMATION
  Report Type: 
  Country: None (occurrence: None)
  Receive Date: 20100709
  Receipt Date: 20100630
  Transmission Date: 20110219
  Serious: Yes (Hospitalization)
  Sender: FDA-Public Use
  Company Number: RU-ABBOTT-10P-251-0654639-00

PATIENT
  Age: 25 Year
  Sex: Female

DRUGS (1)
  1. DEPAKINE CHRONOSPHERE [Suspect]
     Indication: EPILEPSY
     Dosage: PROLONGED RELEASE GRANULES
     Route: 048

REACTIONS (2)
  - PANCREATIC NECROSIS [None]
  - PLEURAL EFFUSION [None]
